FAERS Safety Report 7109268-4 (Version None)
Quarter: 2010Q4

REPORT INFORMATION
  Report Type: 
  Country: None (occurrence: None)
  Receive Date: 20101117
  Receipt Date: 20101104
  Transmission Date: 20110411
  Serious: Yes (Life-Threatening, Disabling, Other)
  Sender: FDA-Public Use
  Company Number: GB-MYLANLABS-2010S1020295

PATIENT
  Age: 67 Year
  Sex: Female
  Weight: 74 kg

DRUGS (10)
  1. ALENDRONATE SODIUM [Suspect]
     Indication: PRODUCT USED FOR UNKNOWN INDICATION
     Route: 048
  2. AMLODIPINE [Suspect]
     Indication: PRODUCT USED FOR UNKNOWN INDICATION
  3. CIPROFLOXACIN [Suspect]
     Indication: PRODUCT USED FOR UNKNOWN INDICATION
  4. AMITRIPTYLINE HYDROCHLORIDE [Suspect]
     Indication: PRODUCT USED FOR UNKNOWN INDICATION
  5. FOSAMAX [Suspect]
     Indication: PRODUCT USED FOR UNKNOWN INDICATION
  6. LOSARTAN POTASSIUM [Suspect]
     Indication: HYPERTENSION
     Route: 048
  7. RISPERIDONE [Suspect]
     Indication: PRODUCT USED FOR UNKNOWN INDICATION
  8. AMITRIPTYLINE HYDROCHLORIDE [Concomitant]
     Indication: PAIN
     Dates: start: 20091019, end: 20100205
  9. LANSOPRAZOLE [Concomitant]
     Indication: HYPERCHLORHYDRIA
     Dates: start: 20070221, end: 20100921
  10. AMITRIPTYLINE HYDROCHLORIDE [Concomitant]
     Indication: IRRITABLE BOWEL SYNDROME

REACTIONS (5)
  - ARTHRALGIA [None]
  - IRRITABLE BOWEL SYNDROME [None]
  - JUDGEMENT IMPAIRED [None]
  - PANIC ATTACK [None]
  - REFLEXES ABNORMAL [None]
